FAERS Safety Report 8961747 (Version 2)
Quarter: 2012Q4

REPORT INFORMATION
  Report Type: 
  Country: US (occurrence: US)
  Receive Date: 20121213
  Receipt Date: 20121213
  Transmission Date: 20130627
  Serious: Yes (Hospitalization)
  Sender: FDA-Public Use
  Company Number: US-PFIZER INC-2005064226

PATIENT
  Age: 67 Year
  Sex: Male

DRUGS (7)
  1. IBUPROFEN [Suspect]
     Indication: DRUG USE FOR UNKNOWN INDICATION
     Dosage: SEMI-REGULAR BASIS
     Route: 048
     Dates: end: 200204
  2. PARACETAMOL [Suspect]
     Indication: HEAD INJURY
     Dosage: ^LARGE AMOUNT^
     Route: 048
     Dates: start: 200201, end: 200205
  3. ASPIRIN [Suspect]
     Indication: HEAD INJURY
     Dosage: ^LIKE CANDY^
     Route: 048
     Dates: end: 200205
  4. UNSPECIFIED INGREDIENT [Suspect]
     Indication: HEADACHE
     Dosage: Q 4 HOURS FOR SEVERAL YEARS
     Route: 048
  5. OXYCOCET [Suspect]
     Indication: HEAD INJURY
     Dosage: 8-10 TABS DECREASED TO 3-4 TABS PER DAY
     Route: 048
     Dates: start: 1995
  6. ACETYLSALICYLIC ACID [Suspect]
     Indication: DRUG USE FOR UNKNOWN INDICATION
     Dosage: UNSPECIFIED
     Route: 048
  7. ZOLPIDEM TARTRATE [Concomitant]
     Dosage: UNSPECIFIED
     Route: 065

REACTIONS (7)
  - Renal failure acute [Not Recovered/Not Resolved]
  - Intentional drug misuse [Unknown]
  - Rhabdomyolysis [Unknown]
  - Bleeding time abnormal [Unknown]
  - Cardiac failure congestive [Unknown]
  - Gastritis haemorrhagic [Unknown]
  - Hypertension [Unknown]
